FAERS Safety Report 20929367 (Version 1)
Quarter: 2022Q2

REPORT INFORMATION
  Report Type: Spontaneous
  Country: FR (occurrence: FR)
  Receive Date: 20220608
  Receipt Date: 20220608
  Transmission Date: 20220720
  Serious: Yes (Hospitalization)
  Sender: FDA-Public Use
  Company Number: FR-BAXTER-2022BAX009892

PATIENT

DRUGS (14)
  1. WATER [Suspect]
     Active Substance: WATER
     Dosage: UNK
     Route: 065
     Dates: start: 20220508, end: 20220508
  2. AMINO ACIDS, SOURCE UNSPECIFIED [Suspect]
     Active Substance: AMINO ACIDS, SOURCE UNSPECIFIED
     Dosage: UNK
     Route: 065
     Dates: start: 20220508, end: 20220508
  3. CERNEVIT [Suspect]
     Active Substance: VITAMINS
     Dosage: UNK
     Route: 065
     Dates: start: 20220508, end: 20220508
  4. SODIUM CHLORIDE [Suspect]
     Active Substance: SODIUM CHLORIDE
     Dosage: UNK , 20% 500 ML
     Route: 065
     Dates: start: 20220508, end: 20220508
  5. DEXTROSE [Suspect]
     Active Substance: DEXTROSE
     Dosage: UNK
     Route: 065
     Dates: start: 20220508, end: 20220508
  6. POTASSIUM PHOSPHATES [Suspect]
     Active Substance: POTASSIUM PHOSPHATE, DIBASIC\POTASSIUM PHOSPHATE, MONOBASIC
     Dosage: UNK, 500 ML, 13,60%
     Route: 065
     Dates: start: 20220508, end: 20220508
  7. POTASSIUM CHLORIDE [Suspect]
     Active Substance: POTASSIUM CHLORIDE
     Dosage: UNK, 10%, 500 ML
     Route: 065
     Dates: start: 20220508, end: 20220508
  8. CALCIUM GLUCONATE [Suspect]
     Active Substance: CALCIUM GLUCONATE
     Dosage: UNK, 500 ML 10%
     Route: 065
     Dates: start: 20220508, end: 20220508
  9. MAGNESIUM CHLORIDE [Suspect]
     Active Substance: MAGNESIUM CHLORIDE
     Dosage: UNK, 10 %, 500 ML
     Route: 065
     Dates: start: 20220508, end: 20220508
  10. CALCIUM CHLORIDE\POTASSIUM CHLORIDE\SODIUM CHLORIDE\SODIUM LACTATE [Suspect]
     Active Substance: CALCIUM CHLORIDE\POTASSIUM CHLORIDE\SODIUM CHLORIDE\SODIUM LACTATE
     Dosage: UNK, 11.2 %
     Route: 065
     Dates: start: 20220508, end: 20220508
  11. ZINC [Suspect]
     Active Substance: ZINC
     Dosage: UNK
     Route: 065
     Dates: start: 20220508, end: 20220508
  12. FAMOTIDINE [Suspect]
     Active Substance: FAMOTIDINE
     Dosage: UNK
     Route: 065
     Dates: start: 20220508, end: 20220508
  13. SMOFLIPID [Suspect]
     Active Substance: FISH OIL\MEDIUM-CHAIN TRIGLYCERIDES\OLIVE OIL\SOYBEAN OIL
     Dosage: UNK
     Route: 065
     Dates: start: 20220508, end: 20220508
  14. UNSPECIFIED INGREDIENT [Suspect]
     Active Substance: UNSPECIFIED INGREDIENT
     Dosage: UNK, 40 ML
     Route: 065
     Dates: start: 20220508, end: 20220508

REACTIONS (1)
  - Pyrexia [Unknown]

NARRATIVE: CASE EVENT DATE: 20220508
